FAERS Safety Report 23813225 (Version 1)
Quarter: 2024Q2

REPORT INFORMATION
  Report Type: Spontaneous
  Country: US (occurrence: US)
  Receive Date: 20240503
  Receipt Date: 20240503
  Transmission Date: 20240716
  Serious: No
  Sender: FDA-Public Use
  Company Number: US-HALEON-2172045

PATIENT
  Sex: Male

DRUGS (2)
  1. ADVIL [Suspect]
     Active Substance: IBUPROFEN
     Indication: Pain
     Dosage: EXPDATE:20250430
     Route: 065
     Dates: end: 20240428
  2. ADVIL [Suspect]
     Active Substance: IBUPROFEN
     Dosage: 2 TABLET EVERY 7 HOURSEXPDATE:20250430
     Route: 065
     Dates: end: 20240428

REACTIONS (3)
  - Gastrointestinal pain [Not Recovered/Not Resolved]
  - Abdominal distension [Not Recovered/Not Resolved]
  - Constipation [Not Recovered/Not Resolved]

NARRATIVE: CASE EVENT DATE: 20240427
